FAERS Safety Report 12833291 (Version 7)
Quarter: 2018Q2

REPORT INFORMATION
  Report Type: Spontaneous
  Country: CA (occurrence: CA)
  Receive Date: 20161010
  Receipt Date: 20180628
  Transmission Date: 20180711
  Serious: Yes (Hospitalization, Other)
  Sender: FDA-Public Use
  Company Number: CA-ACTELION-A-US2016-143212

PATIENT
  Age: 30 Year
  Sex: Male
  Weight: 54.42 kg

DRUGS (9)
  1. CARIPUL [Suspect]
     Active Substance: EPOPROSTENOL
     Indication: PULMONARY ARTERIAL HYPERTENSION
     Dosage: UNK
     Route: 042
     Dates: start: 20150105
  2. LANTUS [Concomitant]
     Active Substance: INSULIN GLARGINE
  3. WARFARIN [Concomitant]
     Active Substance: WARFARIN
  4. AVENTYL [Concomitant]
     Active Substance: NORTRIPTYLINE HYDROCHLORIDE
  5. OPSUMIT [Suspect]
     Active Substance: MACITENTAN
     Indication: PULMONARY ARTERIAL HYPERTENSION
     Dosage: 10 MG, UNK
     Route: 048
     Dates: start: 20150105
  6. NOVORAPID [Concomitant]
     Active Substance: INSULIN ASPART
  7. SYNTHROID [Concomitant]
     Active Substance: LEVOTHYROXINE SODIUM
  8. SILDENAFIL. [Concomitant]
     Active Substance: SILDENAFIL
  9. TYLENOL WITH CODEINE [Concomitant]
     Active Substance: ACETAMINOPHEN\CODEINE PHOSPHATE

REACTIONS (16)
  - Nasopharyngitis [Unknown]
  - Nasal congestion [Recovered/Resolved]
  - Epistaxis [Recovered/Resolved]
  - Malaise [Not Recovered/Not Resolved]
  - Pulmonary arterial pressure increased [Not Recovered/Not Resolved]
  - Dyspnoea [Unknown]
  - Unevaluable event [Unknown]
  - Oxygen therapy [Not Recovered/Not Resolved]
  - Infarction [Not Recovered/Not Resolved]
  - Pain in extremity [Not Recovered/Not Resolved]
  - Blood glucose decreased [Not Recovered/Not Resolved]
  - Speech disorder [Not Recovered/Not Resolved]
  - Ear infection [Unknown]
  - Ear pain [Unknown]
  - Hypokinesia [Not Recovered/Not Resolved]
  - Pyrexia [Unknown]

NARRATIVE: CASE EVENT DATE: 20160926
